FAERS Safety Report 9344408 (Version 1)
Quarter: 2013Q2

REPORT INFORMATION
  Report Type: Spontaneous
  Country: JP (occurrence: JP)
  Receive Date: 20130612
  Receipt Date: 20130612
  Transmission Date: 20140414
  Serious: Yes (Hospitalization)
  Sender: FDA-Public Use
  Company Number: JP-JNJFOC-20130604738

PATIENT
  Age: 74 Year
  Sex: Female
  Weight: 52 kg

DRUGS (8)
  1. RISPERDAL [Suspect]
     Indication: SCHIZOPHRENIA
     Route: 048
     Dates: start: 201301, end: 20130327
  2. LIMAS [Suspect]
     Indication: PRODUCT USED FOR UNKNOWN INDICATION
     Route: 048
  3. HIBERNA [Concomitant]
     Route: 048
  4. MARZULENE-S [Concomitant]
     Route: 048
  5. ISOMYTAL [Concomitant]
     Route: 048
  6. BROVARIN [Concomitant]
     Route: 048
  7. BENZALIN [Concomitant]
     Route: 048
  8. MEVALOTIN [Concomitant]
     Route: 048

REACTIONS (2)
  - Myocardial infarction [Unknown]
  - Neuroleptic malignant syndrome [Recovered/Resolved]
